FAERS Safety Report 24451345 (Version 1)
Quarter: 2024Q4

REPORT INFORMATION
  Report Type: Report from Study
  Country: IN (occurrence: IN)
  Receive Date: 20241017
  Receipt Date: 20241017
  Transmission Date: 20250114
  Serious: Yes (Life-Threatening, Other)
  Sender: NOVARTIS
  Company Number: IN-002147023-NVSC2023IN050815

PATIENT
  Age: 56 Year
  Sex: Female

DRUGS (6)
  1. RIBOCICLIB [Suspect]
     Active Substance: RIBOCICLIB
     Indication: Breast cancer metastatic
     Dosage: 400 MG, QD
     Route: 048
     Dates: start: 20221222, end: 202302
  2. RIBOCICLIB [Suspect]
     Active Substance: RIBOCICLIB
     Dosage: 400 MG, QD
     Route: 048
     Dates: start: 202302, end: 202304
  3. RIBOCICLIB [Suspect]
     Active Substance: RIBOCICLIB
     Dosage: 400 MG, QD
     Route: 048
     Dates: start: 202304, end: 202305
  4. RIBOCICLIB [Suspect]
     Active Substance: RIBOCICLIB
     Dosage: 400 MG, QD
     Route: 048
     Dates: start: 202305, end: 202306
  5. RIBOCICLIB [Suspect]
     Active Substance: RIBOCICLIB
     Dosage: 400 MG, QD
     Route: 048
     Dates: start: 202306
  6. RIBOCICLIB [Suspect]
     Active Substance: RIBOCICLIB
     Dosage: 600 MG, QD
     Route: 048

REACTIONS (10)
  - Asthenia [Unknown]
  - Neoplasm malignant [Unknown]
  - White blood cell count decreased [Recovering/Resolving]
  - Visual impairment [Unknown]
  - Epistaxis [Recovered/Resolved]
  - Pyrexia [Unknown]
  - Vomiting [Unknown]
  - Cough [Unknown]
  - Pain [Unknown]
  - Aphasia [Unknown]

NARRATIVE: CASE EVENT DATE: 20230201
